FAERS Safety Report 5910235-4 (Version None)
Quarter: 2008Q4

REPORT INFORMATION
  Report Type: 
  Country: None (occurrence: None)
  Receive Date: 20081007
  Receipt Date: 20071025
  Transmission Date: 20090506
  Serious: No
  Sender: FDA-Public Use
  Company Number: US-ASTRAZENECA-2007UW24840

PATIENT
  Age: 52 Year
  Sex: Female
  Weight: 63.5 kg

DRUGS (4)
  1. ARIMIDEX [Suspect]
     Indication: BREAST CANCER STAGE II
     Route: 048
     Dates: start: 20060101
  2. IBUPROFEN [Concomitant]
  3. CALCIUM [Concomitant]
  4. GLUCOSAMINE W/CHONDROITIN [Concomitant]

REACTIONS (4)
  - ARTHRALGIA [None]
  - BONE PAIN [None]
  - BONE SWELLING [None]
  - COSTOCHONDRITIS [None]
